FAERS Safety Report 19840279 (Version 1)
Quarter: 2021Q3

REPORT INFORMATION
  Report Type: Spontaneous
  Country: US (occurrence: US)
  Receive Date: 20210916
  Receipt Date: 20210916
  Transmission Date: 20211014
  Serious: No
  Sender: FDA-Public Use
  Company Number: None

PATIENT
  Age: 34 Year
  Sex: Female
  Weight: 55.8 kg

DRUGS (6)
  1. TUMERIC [Concomitant]
     Active Substance: HERBALS\TURMERIC
  2. CEPHALEXIN. [Suspect]
     Active Substance: CEPHALEXIN
     Indication: PHARYNGITIS STREPTOCOCCAL
     Dosage: ?          QUANTITY:20 CAPSULE(S);?
     Route: 048
     Dates: start: 20210911, end: 20210915
  3. MAGNESIUM (UNKNOWN) [Concomitant]
     Active Substance: MAGNESIUM
  4. VITAMIN C [Concomitant]
     Active Substance: ASCORBIC ACID
  5. CALCIUM + VITAMIN D /09279801/ [Concomitant]
     Active Substance: CALCIUM\CHOLECALCIFEROL
  6. ?GUANFACINE HCL ER 1MG [Concomitant]
     Active Substance: GUANFACINE HYDROCHLORIDE

REACTIONS (6)
  - Neck pain [None]
  - Pain [None]
  - Back pain [None]
  - Arthralgia [None]
  - Vomiting [None]
  - Headache [None]

NARRATIVE: CASE EVENT DATE: 20210912
